FAERS Safety Report 6093370-2 (Version None)
Quarter: 2009Q1

REPORT INFORMATION
  Report Type: 
  Country: None (occurrence: None)
  Receive Date: 20090223
  Receipt Date: 20090223
  Transmission Date: 20090719
  Serious: Yes (Life-Threatening, Other)
  Sender: FDA-Public Use
  Company Number: None

PATIENT
  Sex: Female

DRUGS (1)
  1. HUMALOG [Suspect]
     Indication: DIABETES MELLITUS
     Dosage: 5 INJECTIONS DAILY IV
     Route: 042
     Dates: start: 20080501, end: 20090202

REACTIONS (3)
  - FATIGUE [None]
  - MYALGIA [None]
  - SOMNOLENCE [None]
